FAERS Safety Report 5627332-3 (Version None)
Quarter: 2008Q1

REPORT INFORMATION
  Report Type: 
  Country: None (occurrence: None)
  Receive Date: 20080215
  Receipt Date: 20080205
  Transmission Date: 20080703
  Serious: Yes (Hospitalization)
  Sender: FDA-Public Use
  Company Number: US-JNJFOC-20080201446

PATIENT
  Sex: Female
  Weight: 58.97 kg

DRUGS (6)
  1. DURAGESIC-100 [Suspect]
     Indication: PAIN
     Route: 062
  2. PREMARIN [Suspect]
     Indication: HORMONE REPLACEMENT THERAPY
     Route: 048
  3. CONCERTA [Concomitant]
     Indication: ATTENTION DEFICIT/HYPERACTIVITY DISORDER
     Route: 048
  4. CLOZAPINE [Concomitant]
     Indication: BIPOLAR DISORDER
     Route: 048
  5. SEROQUEL [Concomitant]
     Indication: BIPOLAR DISORDER
     Route: 048
  6. EFFEXOR XR [Concomitant]
     Indication: BIPOLAR DISORDER
     Route: 048

REACTIONS (9)
  - ATTENTION DEFICIT/HYPERACTIVITY DISORDER [None]
  - DEPRESSION [None]
  - DIARRHOEA [None]
  - HYPERHIDROSIS [None]
  - HYSTERECTOMY [None]
  - MOOD SWINGS [None]
  - URINARY TRACT INFECTION [None]
  - VOMITING [None]
  - WRONG TECHNIQUE IN DRUG USAGE PROCESS [None]
